FAERS Safety Report 7449258-5 (Version None)
Quarter: 2011Q2

REPORT INFORMATION
  Report Type: 
  Country: None (occurrence: None)
  Receive Date: 20110502
  Receipt Date: 20110328
  Transmission Date: 20111010
  Serious: Yes (Other)
  Sender: FDA-Public Use
  Company Number: US-BAYER-201036106NA

PATIENT
  Age: 38 Year
  Sex: Female
  Weight: 118 kg

DRUGS (3)
  1. YASMIN [Suspect]
     Indication: PRODUCT USED FOR UNKNOWN INDICATION
     Dosage: UNK
     Route: 048
  2. PREMESIS [Concomitant]
     Dosage: UNK
  3. YAZ [Suspect]
     Indication: PREMENSTRUAL SYNDROME
     Dosage: UNK
     Route: 048
     Dates: start: 20061001, end: 20070401

REACTIONS (1)
  - PREGNANCY ON ORAL CONTRACEPTIVE [None]
